FAERS Safety Report 5716463-5 (Version None)
Quarter: 2008Q2

REPORT INFORMATION
  Report Type: 
  Country: None (occurrence: None)
  Receive Date: 20080415
  Receipt Date: 20070619
  Transmission Date: 20081010
  Serious: Yes (Hospitalization)
  Sender: FDA-Public Use
  Company Number: 2007-02951

PATIENT
  Age: 27 Year
  Sex: Female
  Weight: 75.8 kg

DRUGS (3)
  1. FERRLECIT [Suspect]
     Indication: IRON DEFICIENCY ANAEMIA
     Dosage: 175MG/350ML NS OVER 1.5 HRS, INTRAVENOUS ; INTRAVENOUS
     Route: 042
     Dates: start: 20060701, end: 20060701
  2. FERRLECIT [Suspect]
     Indication: IRON DEFICIENCY ANAEMIA
     Dosage: 175MG/350ML NS OVER 1.5 HRS, INTRAVENOUS ; INTRAVENOUS
     Route: 042
     Dates: start: 20070601, end: 20070601
  3. DILANTIN [Concomitant]

REACTIONS (5)
  - BACK PAIN [None]
  - HYPOTENSION [None]
  - NAUSEA [None]
  - PAIN [None]
  - VOMITING [None]
